FAERS Safety Report 19934263 (Version 2)
Quarter: 2022Q2

REPORT INFORMATION
  Report Type: Spontaneous
  Country: US (occurrence: None)
  Receive Date: 20211008
  Receipt Date: 20220520
  Transmission Date: 20220721
  Serious: Yes (Other)
  Sender: FDA-Public Use
  Company Number: 2021A757873

PATIENT
  Age: 20458 Day
  Sex: Female

DRUGS (64)
  1. NEXIUM [Suspect]
     Active Substance: ESOMEPRAZOLE MAGNESIUM
     Indication: Gastrooesophageal reflux disease
     Route: 048
     Dates: start: 2000, end: 2018
  2. NEXIUM [Suspect]
     Active Substance: ESOMEPRAZOLE MAGNESIUM
     Indication: Gastrooesophageal reflux disease
     Route: 048
     Dates: start: 2001, end: 2018
  3. NEXIUM [Suspect]
     Active Substance: ESOMEPRAZOLE MAGNESIUM
     Indication: Gastrooesophageal reflux disease
     Dosage: GENERIC
     Route: 065
     Dates: start: 2015, end: 2019
  4. PRILOSEC [Suspect]
     Active Substance: OMEPRAZOLE MAGNESIUM
     Indication: Gastrooesophageal reflux disease
     Route: 048
     Dates: start: 2000, end: 2018
  5. PRILOSEC [Suspect]
     Active Substance: OMEPRAZOLE MAGNESIUM
     Indication: Gastrooesophageal reflux disease
     Route: 048
     Dates: start: 2000, end: 2019
  6. PRILOSEC [Suspect]
     Active Substance: OMEPRAZOLE MAGNESIUM
     Indication: Gastrooesophageal reflux disease
     Dosage: GENERIC
     Route: 065
     Dates: start: 2012, end: 2019
  7. PRILOSEC OTC [Suspect]
     Active Substance: OMEPRAZOLE MAGNESIUM
     Indication: Gastrooesophageal reflux disease
     Route: 048
     Dates: start: 2000, end: 2018
  8. PRILOSEC OTC [Suspect]
     Active Substance: OMEPRAZOLE MAGNESIUM
     Indication: Gastrooesophageal reflux disease
     Route: 048
     Dates: start: 2003, end: 2018
  9. PROTONIX [Suspect]
     Active Substance: PANTOPRAZOLE SODIUM
     Indication: Gastrooesophageal reflux disease
     Route: 065
     Dates: start: 2000, end: 2018
  10. ZITHROMAX [Concomitant]
     Active Substance: AZITHROMYCIN DIHYDRATE
     Indication: Infection
  11. ULTRAM [Concomitant]
     Active Substance: TRAMADOL HYDROCHLORIDE
     Indication: Inflammation
  12. ERYTHROMYCIN [Concomitant]
     Active Substance: ERYTHROMYCIN
     Indication: Infection
  13. AMOXICILLIN [Concomitant]
     Active Substance: AMOXICILLIN
     Indication: Infection
  14. NAPROXEN [Concomitant]
     Active Substance: NAPROXEN
     Indication: Pain
  15. AMITRIPTYLINE [Concomitant]
     Active Substance: AMITRIPTYLINE
     Indication: Depression
  16. BETAMETHASONE/KETOROLAC [Concomitant]
     Indication: Pain
  17. CELEBREX [Concomitant]
     Active Substance: CELECOXIB
     Indication: Inflammation
  18. METHOTREXATE [Concomitant]
     Active Substance: METHOTREXATE
     Indication: Rheumatoid arthritis
  19. LISINOPRIL [Concomitant]
     Active Substance: LISINOPRIL
     Indication: Hypertension
  20. COZAAR [Concomitant]
     Active Substance: LOSARTAN POTASSIUM
     Indication: Hypertension
  21. CIPROFLOXACIN [Concomitant]
     Active Substance: CIPROFLOXACIN
     Indication: Infection
  22. ASPIRIN [Concomitant]
     Active Substance: ASPIRIN
     Indication: Pain
  23. VITAMINS [Concomitant]
     Active Substance: VITAMINS
     Indication: Hypovitaminosis
  24. FOLIC ACID [Concomitant]
     Active Substance: FOLIC ACID
     Indication: Vitamin B complex deficiency
  25. UNCARIA SPP./CRATAEGUS PINNATIFIDA/ACHYRANTHES BIDENTATA/PRUNELLA VULG [Concomitant]
     Indication: Calcium deficiency
  26. VITAMIN D [Concomitant]
     Active Substance: VITAMIN D NOS
     Indication: Vitamin D deficiency
  27. IRON POLYSACCHARIDE COMPLEX/NICOTINAMIDE/CALCIUM PANTOTHENATE/BIOTIN/C [Concomitant]
     Indication: Iron deficiency
  28. AXID [Concomitant]
     Active Substance: NIZATIDINE
  29. RANITIDINE [Concomitant]
     Active Substance: RANITIDINE
  30. HUMIRA [Concomitant]
     Active Substance: ADALIMUMAB
  31. PERCOCET [Concomitant]
     Active Substance: ACETAMINOPHEN\OXYCODONE HYDROCHLORIDE
  32. ACETAMINOPHEN [Concomitant]
     Active Substance: ACETAMINOPHEN
  33. PROCARDIA [Concomitant]
     Active Substance: NIFEDIPINE
  34. METOPROLOL TARTRATE [Concomitant]
     Active Substance: METOPROLOL TARTRATE
  35. CLOBETASOL [Concomitant]
     Active Substance: CLOBETASOL
  36. PREDNISONE [Concomitant]
     Active Substance: PREDNISONE
  37. VICODIN [Concomitant]
     Active Substance: ACETAMINOPHEN\HYDROCODONE BITARTRATE
  38. FLUCONAZOLE [Concomitant]
     Active Substance: FLUCONAZOLE
  39. SIMVASTATIN [Concomitant]
     Active Substance: SIMVASTATIN
  40. ASTELINE [Concomitant]
  41. ZADITOR [Concomitant]
     Active Substance: KETOTIFEN FUMARATE
  42. PROAIR HFA [Concomitant]
     Active Substance: ALBUTEROL SULFATE
  43. EDECRIN [Concomitant]
     Active Substance: ETHACRYNIC ACID
  44. FAMOTIDINE [Concomitant]
     Active Substance: FAMOTIDINE
  45. KETOCONAZOLE [Concomitant]
     Active Substance: KETOCONAZOLE
  46. LEFLUNOMIDE [Concomitant]
     Active Substance: LEFLUNOMIDE
  47. PHOSLO [Concomitant]
     Active Substance: CALCIUM ACETATE
  48. SINGULAIR [Concomitant]
     Active Substance: MONTELUKAST SODIUM
  49. PLAQUENIL [Concomitant]
     Active Substance: HYDROXYCHLOROQUINE SULFATE
  50. LORTAB [Concomitant]
     Active Substance: ACETAMINOPHEN\HYDROCODONE BITARTRATE
  51. BACTRIM [Concomitant]
     Active Substance: SULFAMETHOXAZOLE\TRIMETHOPRIM
  52. HYDROCHLOROTHIAZIDE [Concomitant]
     Active Substance: HYDROCHLOROTHIAZIDE
  53. MORPHINE [Concomitant]
     Active Substance: MORPHINE
  54. ENBREL [Concomitant]
     Active Substance: ETANERCEPT
  55. BOTOX [Concomitant]
     Active Substance: ONABOTULINUMTOXINA
  56. SULFASALAZINE [Concomitant]
     Active Substance: SULFASALAZINE
  57. NASACORT [Concomitant]
     Active Substance: TRIAMCINOLONE ACETONIDE
  58. POLYSACCHARIDE [Concomitant]
  59. NYSTATIN [Concomitant]
     Active Substance: NYSTATIN
  60. REMERON [Concomitant]
     Active Substance: MIRTAZAPINE
  61. ZOSTAVAX [Concomitant]
     Active Substance: VARICELLA-ZOSTER VIRUS STRAIN OKA/MERCK LIVE ANTIGEN
  62. AZATHIOPRINE [Concomitant]
     Active Substance: AZATHIOPRINE
  63. BACTROBAN [Concomitant]
     Active Substance: MUPIROCIN\MUPIROCIN CALCIUM
  64. WELCHOL [Concomitant]
     Active Substance: COLESEVELAM HYDROCHLORIDE

REACTIONS (7)
  - Chronic kidney disease [Not Recovered/Not Resolved]
  - End stage renal disease [Not Recovered/Not Resolved]
  - Acute kidney injury [Not Recovered/Not Resolved]
  - Renal failure [Unknown]
  - Chronic kidney disease-mineral and bone disorder [Unknown]
  - Nephrogenic anaemia [Unknown]
  - Osteopenia [Unknown]

NARRATIVE: CASE EVENT DATE: 20100830
